FAERS Safety Report 8356881-2 (Version None)
Quarter: 2012Q2

REPORT INFORMATION
  Report Type: 
  Country: None (occurrence: None)
  Receive Date: 20120514
  Receipt Date: 20120509
  Transmission Date: 20120825
  Serious: Yes (Other)
  Sender: FDA-Public Use
  Company Number: US-PFIZER INC-2011083178

PATIENT
  Sex: Female
  Weight: 92.063 kg

DRUGS (8)
  1. AMITRIPTYLINE [Concomitant]
     Indication: DEPRESSION
     Dosage: UNK
     Route: 048
  2. SINGULAIR [Concomitant]
     Dosage: 10 MG
  3. LYRICA [Suspect]
     Indication: FIBROMYALGIA
     Dosage: 75 MG, 2X/DAY
     Route: 048
     Dates: start: 20100601, end: 20110412
  4. TRIAMTERENE [Concomitant]
     Indication: HYPERTENSION
     Dosage: UNK, 1X/DAY
  5. TRIAMTERENE AND HYDROCHLOROTHIAZIDE [Concomitant]
     Indication: HYPERTENSION
     Dosage: 50/75MG, DAILY
  6. LYRICA [Suspect]
     Dosage: 150 MG, 2X/DAY
  7. OMEPRAZOLE [Concomitant]
     Dosage: 20 MG
  8. MICROGESTIN 1.5/30 [Concomitant]
     Indication: CONTRACEPTION
     Dosage: 1/20

REACTIONS (6)
  - DIARRHOEA [None]
  - BURNING SENSATION MUCOSAL [None]
  - HAEMORRHAGE [None]
  - PAIN [None]
  - ASTHENIA [None]
  - VOMITING [None]
